FAERS Safety Report 8511237-4 (Version None)
Quarter: 2012Q3

REPORT INFORMATION
  Report Type: 
  Country: None (occurrence: None)
  Receive Date: 20120716
  Receipt Date: 20120702
  Transmission Date: 20120928
  Serious: Yes (Hospitalization, Other)
  Sender: FDA-Public Use
  Company Number: KR-MPIJNJ-2011-05693

PATIENT

DRUGS (11)
  1. MELPHALAN HYDROCHLORIDE [Suspect]
     Dosage: 9 UNK, UNK
     Dates: start: 20111207, end: 20120622
  2. VELCADE [Suspect]
     Dosage: 1.3 MG/M2, UNK
     Dates: start: 20111207, end: 20120626
  3. IRCODIN [Concomitant]
     Indication: ANALGESIC THERAPY
     Dosage: 5 MG, UNK
     Route: 048
     Dates: start: 20110621
  4. MELPHALAN HYDROCHLORIDE [Suspect]
     Indication: MULTIPLE MYELOMA
     Dosage: 9 MG/M2, UNK
     Route: 042
     Dates: start: 20110715, end: 20111014
  5. MUCOSTA [Concomitant]
     Dosage: UNK
     Route: 048
     Dates: start: 20110620
  6. VELCADE [Suspect]
     Indication: MULTIPLE MYELOMA
     Dosage: 1.3 MG/M2, UNK
     Route: 042
     Dates: start: 20110715, end: 20111021
  7. PREDNISOLONE [Suspect]
     Indication: MULTIPLE MYELOMA
     Dosage: 60 MG/M2, UNK
     Route: 042
     Dates: start: 20110715, end: 20111014
  8. PARACETA [Concomitant]
     Indication: ANALGESIC THERAPY
     Dosage: UNK
     Route: 048
     Dates: start: 20111010
  9. VELCADE [Suspect]
     Dosage: 1.0 MG/M2, UNK
     Route: 042
     Dates: start: 20111123, end: 20111123
  10. PREDNISOLONE [Suspect]
     Dosage: 60 UNK, UNK
     Dates: start: 20111207, end: 20120622
  11. CALCIUM CARBONATE [Concomitant]
     Indication: SUPPLEMENTATION THERAPY
     Dosage: UNK
     Route: 048
     Dates: start: 20110805

REACTIONS (2)
  - BRONCHOPNEUMONIA [None]
  - NEUROPATHY PERIPHERAL [None]
